FAERS Safety Report 16313336 (Version 2)
Quarter: 2019Q2

REPORT INFORMATION
  Report Type: Spontaneous
  Country: PL (occurrence: PL)
  Receive Date: 20190515
  Receipt Date: 20190604
  Transmission Date: 20190711
  Serious: Yes (Hospitalization, Other)
  Sender: FDA-Public Use
  Company Number: PL-TEVA-2019-PL-1050352

PATIENT
  Sex: Female

DRUGS (2)
  1. FLUDARABINE [Suspect]
     Active Substance: FLUDARABINE PHOSPHATE
     Route: 065
  2. BUSULFAN. [Suspect]
     Active Substance: BUSULFAN
     Route: 065

REACTIONS (4)
  - Mucosal toxicity [Recovered/Resolved]
  - Neutropenia [Recovered/Resolved]
  - Device related infection [Recovered/Resolved]
  - Enterococcal infection [Recovered/Resolved]
